FAERS Safety Report 13428945 (Version 1)
Quarter: 2017Q2

REPORT INFORMATION
  Report Type: Report from Study
  Country: US (occurrence: US)
  Receive Date: 20170411
  Receipt Date: 20170411
  Transmission Date: 20170830
  Serious: Yes (Other)
  Sender: FDA-Public Use
  Company Number: US-AMGEN-USASL2017054608

PATIENT
  Age: 77 Year
  Sex: Female

DRUGS (2)
  1. ENBREL [Suspect]
     Active Substance: ETANERCEPT
     Indication: PRODUCT USED FOR UNKNOWN INDICATION
     Dosage: UNK
     Route: 065
  2. ENBREL [Suspect]
     Active Substance: ETANERCEPT
     Dosage: UNK
     Route: 065

REACTIONS (9)
  - Musculoskeletal stiffness [Unknown]
  - Arthropathy [Unknown]
  - Cerebrovascular accident [Unknown]
  - Musculoskeletal disorder [Unknown]
  - Injection site pain [Unknown]
  - Mobility decreased [Unknown]
  - Chondropathy [Unknown]
  - Visual impairment [Unknown]
  - Intentional product misuse [Unknown]
